FAERS Safety Report 13993018 (Version 2)
Quarter: 2018Q3

REPORT INFORMATION
  Report Type: Spontaneous
  Country: BR (occurrence: BR)
  Receive Date: 20170920
  Receipt Date: 20180703
  Transmission Date: 20181010
  Serious: Yes (Other)
  Sender: FDA-Public Use
  Company Number: BR-JNJFOC-20170917437

PATIENT
  Sex: Male

DRUGS (3)
  1. IMBRUVICA [Suspect]
     Active Substance: IBRUTINIB
     Indication: LEUKAEMIA
     Route: 048
     Dates: start: 201705
  2. IMBRUVICA [Suspect]
     Active Substance: IBRUTINIB
     Indication: LEUKAEMIA
     Route: 048
  3. IMBRUVICA [Suspect]
     Active Substance: IBRUTINIB
     Indication: LEUKAEMIA
     Route: 048
     Dates: start: 2015, end: 201701

REACTIONS (4)
  - Transplant rejection [Unknown]
  - Lymphadenopathy [Unknown]
  - Decreased immune responsiveness [Not Recovered/Not Resolved]
  - Bone marrow transplant [Unknown]

NARRATIVE: CASE EVENT DATE: 2016
